FAERS Safety Report 4681394-9 (Version None)
Quarter: 2005Q2

REPORT INFORMATION
  Report Type: 
  Country: None (occurrence: None)
  Receive Date: 20050601
  Receipt Date: 20050517
  Transmission Date: 20051028
  Serious: Yes (Hospitalization, Other)
  Sender: FDA-Public Use
  Company Number: USA050598295

PATIENT
  Age: 43 Year
  Sex: Male

DRUGS (9)
  1. CYMBALTA [Suspect]
     Indication: DEPRESSION
     Dosage: 60 MG DAY
     Dates: start: 20050406
  2. TEGRETOL [Concomitant]
  3. DEPAKOTE [Concomitant]
  4. SEROQUEL [Concomitant]
  5. PAXIL [Concomitant]
  6. PEPCID [Concomitant]
  7. PROTONIX [Concomitant]
  8. TRAZODONE [Concomitant]
  9. DULCOLAX [Concomitant]

REACTIONS (2)
  - BLOOD ALKALINE PHOSPHATASE INCREASED [None]
  - PNEUMONIA [None]
